FAERS Safety Report 17718314 (Version 1)
Quarter: 2020Q2

REPORT INFORMATION
  Report Type: Spontaneous
  Country: GB (occurrence: GB)
  Receive Date: 20200428
  Receipt Date: 20200428
  Transmission Date: 20200714
  Serious: Yes (Death, Other)
  Sender: FDA-Public Use
  Company Number: GB-DENTSPLY-2020SCDP000150

PATIENT

DRUGS (2)
  1. LIDOCAINE HCL [Suspect]
     Active Substance: LIDOCAINE HYDROCHLORIDE
     Indication: LOCAL ANAESTHESIA
     Dosage: 4ML 1% LIDOCAINE HYDROCHLORIDE,HIP INJECTION
     Route: 014
  2. TRIAMCINOLONE ACETONIDE. [Suspect]
     Active Substance: TRIAMCINOLONE ACETONIDE
     Indication: LOCAL ANAESTHESIA
     Dosage: 40 MILLIGRAM, HIP INJECTION
     Route: 014

REACTIONS (1)
  - Endocarditis [Fatal]
